FAERS Safety Report 4326733-3 (Version None)
Quarter: 2004Q1

REPORT INFORMATION
  Report Type: 
  Country: None (occurrence: None)
  Receive Date: 20040325
  Receipt Date: 20040119
  Transmission Date: 20041129
  Serious: Yes (Hospitalization)
  Sender: FDA-Public Use
  Company Number: USA030536441

PATIENT
  Age: 70 Year
  Sex: Female
  Weight: 48 kg

DRUGS (8)
  1. FORTEO [Suspect]
     Indication: OSTEOPOROSIS
     Dosage: 20 UG/DAY
     Dates: start: 20030501
  2. ADVAIR DISKUS 100/50 [Concomitant]
  3. AMBIEN [Concomitant]
  4. DYAZIDE [Concomitant]
  5. LIPITOR [Concomitant]
  6. SINGULAIR [Concomitant]
  7. THYROID TAB [Concomitant]
  8. ZYRTEC [Concomitant]

REACTIONS (12)
  - ABDOMINAL PAIN UPPER [None]
  - BLOOD CALCIUM INCREASED [None]
  - BONE PAIN [None]
  - CONTUSION [None]
  - CREPITATIONS [None]
  - MUSCLE CRAMP [None]
  - NAUSEA [None]
  - OEDEMA PERIPHERAL [None]
  - PAIN IN EXTREMITY [None]
  - PNEUMONIA [None]
  - SWELLING [None]
  - WEIGHT INCREASED [None]
